FAERS Safety Report 13481042 (Version 2)
Quarter: 2017Q4

REPORT INFORMATION
  Report Type: Spontaneous
  Country: JP (occurrence: JP)
  Receive Date: 20170425
  Receipt Date: 20171226
  Transmission Date: 20180320
  Serious: Yes (Death, Life-Threatening, Other)
  Sender: FDA-Public Use
  Company Number: JP-BAUSCH-BL-2017-010388

PATIENT
  Age: 63 Year
  Sex: Female

DRUGS (3)
  1. ERYTHROMYCIN. [Suspect]
     Active Substance: ERYTHROMYCIN
     Indication: OBLITERATIVE BRONCHIOLITIS
     Route: 065
  2. PREDNISOLONE. [Suspect]
     Active Substance: PREDNISOLONE
     Indication: OBLITERATIVE BRONCHIOLITIS
     Route: 065
  3. BUDESONIDE W/FORMOTEROL FUMARATE DIHYDRATE [Suspect]
     Active Substance: BUDESONIDE\FORMOTEROL FUMARATE DIHYDRATE
     Indication: OBLITERATIVE BRONCHIOLITIS
     Route: 055

REACTIONS (2)
  - Respiratory failure [Fatal]
  - Drug ineffective [Fatal]
